FAERS Safety Report 6828640-0 (Version None)
Quarter: 2010Q3

REPORT INFORMATION
  Report Type: 
  Country: None (occurrence: None)
  Receive Date: 20100709
  Receipt Date: 20070215
  Transmission Date: 20110219
  Serious: No
  Sender: FDA-Public Use
  Company Number: US-PFIZER INC-2007013066

PATIENT
  Sex: Female
  Weight: 74.39 kg

DRUGS (11)
  1. CHANTIX [Suspect]
     Indication: SMOKING CESSATION THERAPY
     Route: 051
     Dates: start: 20070207
  2. MORPHINE SULFATE [Concomitant]
  3. MORPHINE SULFATE [Concomitant]
  4. ZOLOFT [Concomitant]
  5. ACETYLSALICYLIC ACID [Concomitant]
  6. LAXATIVES [Concomitant]
  7. SYNTHROID [Concomitant]
  8. POTASSIUM [Concomitant]
  9. ZOCOR [Concomitant]
  10. TRICOR [Concomitant]
  11. VITAMIN D [Concomitant]

REACTIONS (1)
  - NAUSEA [None]
